FAERS Safety Report 26195377 (Version 1)
Quarter: 2025Q4

REPORT INFORMATION
  Report Type: Report from Study
  Country: CA (occurrence: CA)
  Receive Date: 20251224
  Receipt Date: 20251224
  Transmission Date: 20260118
  Serious: Yes (Hospitalization, Other)
  Sender: JOHNSON AND JOHNSON
  Company Number: CA-JNJFOC-20240352596

PATIENT
  Age: 63 Year
  Sex: Female

DRUGS (1)
  1. SIMPONI [Suspect]
     Active Substance: GOLIMUMAB
     Indication: Rheumatoid arthritis
     Route: 058
     Dates: start: 20130314

REACTIONS (4)
  - Knee arthroplasty [Unknown]
  - Hip arthroplasty [Unknown]
  - Post procedural complication [Unknown]
  - Influenza [Unknown]

NARRATIVE: CASE EVENT DATE: 20250201
